FAERS Safety Report 5171198-5 (Version None)
Quarter: 2006Q4

REPORT INFORMATION
  Report Type: 
  Country: None (occurrence: None)
  Receive Date: 20061207
  Receipt Date: 20061207
  Transmission Date: 20070319
  Serious: Yes (Other)
  Sender: FDA-Public Use
  Company Number: None

PATIENT

DRUGS (2)
  1. ZOCOR [Suspect]
     Indication: DIABETES MELLITUS
     Dosage: 40 MG QD
  2. ZOCOR [Suspect]
     Indication: HYPERLIPIDAEMIA
     Dosage: 40 MG QD

REACTIONS (2)
  - DRUG TOLERANCE DECREASED [None]
  - MYALGIA [None]
